FAERS Safety Report 6115901-6 (Version None)
Quarter: 2009Q1

REPORT INFORMATION
  Report Type: 
  Country: None (occurrence: None)
  Receive Date: 20090311
  Receipt Date: 20090223
  Transmission Date: 20090719
  Serious: Yes (Other)
  Sender: FDA-Public Use
  Company Number: 000255

PATIENT
  Sex: Male

DRUGS (9)
  1. EDEX [Suspect]
     Indication: ERECTILE DYSFUNCTION
     Dosage: (10 ?G 2X/WEEK INTRACAVERNOUS)
     Route: 017
     Dates: start: 20080601
  2. UNKNOWN [Concomitant]
  3. UNKNOWN [Concomitant]
  4. UNKNOWN [Concomitant]
  5. UNKNOWN [Concomitant]
  6. UNKNOWN [Concomitant]
  7. UNKNOWN [Concomitant]
  8. UNKNOWN [Concomitant]
  9. UNKNOWN [Concomitant]

REACTIONS (1)
  - FEMORAL ARTERY EMBOLISM [None]
